FAERS Safety Report 21172387 (Version 1)
Quarter: 2022Q3

REPORT INFORMATION
  Report Type: Spontaneous
  Country: US (occurrence: None)
  Receive Date: 20220803
  Receipt Date: 20220803
  Transmission Date: 20221027
  Serious: Yes (Hospitalization)
  Sender: FDA-Public Use
  Company Number: None

PATIENT
  Age: 57 Year
  Sex: Male
  Weight: 86.4 kg

DRUGS (2)
  1. CITROMA [Suspect]
     Active Substance: MAGNESIUM CITRATE
     Indication: Laxative supportive care
     Dosage: FREQUENCY : DAILY;?
     Route: 048
     Dates: start: 20220729, end: 20220729
  2. IBUPROFEN [Concomitant]
     Active Substance: IBUPROFEN

REACTIONS (8)
  - Pain [None]
  - Headache [None]
  - Oropharyngeal pain [None]
  - Chest pain [None]
  - Confusional state [None]
  - Hallucination [None]
  - Recalled product administered [None]
  - Malaise [None]

NARRATIVE: CASE EVENT DATE: 20220729
